FAERS Safety Report 17876830 (Version 1)
Quarter: 2020Q2

REPORT INFORMATION
  Report Type: Spontaneous
  Country: US (occurrence: US)
  Receive Date: 20200609
  Receipt Date: 20200609
  Transmission Date: 20200714
  Serious: No
  Sender: FDA-Public Use
  Company Number: US-SA-2020SA146374

PATIENT

DRUGS (1)
  1. DUPIXENT [Suspect]
     Active Substance: DUPILUMAB

REACTIONS (9)
  - Eye inflammation [Unknown]
  - Skin exfoliation [Unknown]
  - Eczema [Not Recovered/Not Resolved]
  - Erythema [Unknown]
  - Dry eye [Unknown]
  - Eye irritation [Unknown]
  - Asthma [Not Recovered/Not Resolved]
  - Ocular hyperaemia [Unknown]
  - Erythema of eyelid [Unknown]

NARRATIVE: CASE EVENT DATE: 2020
